FAERS Safety Report 19313287 (Version 5)
Quarter: 2022Q1

REPORT INFORMATION
  Report Type: Report from Study
  Country: US (occurrence: US)
  Receive Date: 20210527
  Receipt Date: 20220103
  Transmission Date: 20220423
  Serious: No
  Sender: FDA-Public Use
  Company Number: NVSC2021US112844

PATIENT
  Age: 61 Year
  Sex: Female

DRUGS (1)
  1. KESIMPTA [Suspect]
     Active Substance: OFATUMUMAB
     Indication: Product used for unknown indication
     Dosage: 20 MG, QMO (BENEATH THE SKIN)
     Route: 058
     Dates: start: 20210507

REACTIONS (3)
  - Illness [Recovered/Resolved]
  - Pyrexia [Recovered/Resolved]
  - Asthenia [Recovered/Resolved]

NARRATIVE: CASE EVENT DATE: 20210507
